FAERS Safety Report 24360645 (Version 3)
Quarter: 2024Q4

REPORT INFORMATION
  Report Type: Report from Study
  Country: US (occurrence: US)
  Receive Date: 20240925
  Receipt Date: 20241004
  Transmission Date: 20250114
  Serious: No
  Sender: AMGEN
  Company Number: US-AMGEN-USASP2024187425

PATIENT
  Age: 32 Year
  Sex: Female
  Weight: 171.46 kg

DRUGS (4)
  1. RIABNI [Suspect]
     Active Substance: RITUXIMAB-ARRX
     Indication: Immune thrombocytopenia
     Dosage: 500 MILLIGRAM (1 X 500 MG)
     Route: 065
     Dates: start: 20240918
  2. RIABNI [Suspect]
     Active Substance: RITUXIMAB-ARRX
     Dosage: 100 MILLIGRAM (4 X100 MG)
     Route: 065
  3. RIABNI [Suspect]
     Active Substance: RITUXIMAB-ARRX
     Dosage: UNK
     Route: 065
  4. RIABNI [Suspect]
     Active Substance: RITUXIMAB-ARRX
     Dosage: UNK
     Route: 065

REACTIONS (6)
  - Swelling [Recovered/Resolved]
  - Throat tightness [Unknown]
  - Off label use [Unknown]
  - Pruritus [Recovered/Resolved]
  - Dyspnoea [Recovered/Resolved]
  - Chest discomfort [Recovered/Resolved]

NARRATIVE: CASE EVENT DATE: 20240918
